FAERS Safety Report 9170589 (Version 1)
Quarter: 2013Q1

REPORT INFORMATION
  Report Type: Spontaneous
  Country: US (occurrence: US)
  Receive Date: 20130319
  Receipt Date: 20130319
  Transmission Date: 20140127
  Serious: Yes (Death, Hospitalization)
  Sender: FDA-Public Use
  Company Number: US-JNJFOC-2002127317US

PATIENT
  Age: 71 Year
  Sex: Female

DRUGS (5)
  1. MOTRIN [Suspect]
     Indication: PRODUCT USED FOR UNKNOWN INDICATION
     Route: 048
  2. TYLENOL [Concomitant]
  3. FOSAMAX [Concomitant]
  4. PREMARIN [Concomitant]
  5. CELEBREX [Concomitant]
     Dosage: DAILY DOSE TEXT: UNK, UNK
     Route: 048

REACTIONS (8)
  - Intentional overdose [Fatal]
  - Apnoea [Fatal]
  - Dehydration [Fatal]
  - Acidosis [Fatal]
  - Tachycardia [Fatal]
  - Hypoglycaemia [Fatal]
  - Hypotension [Fatal]
  - Leukocytosis [Fatal]
